FAERS Safety Report 10219821 (Version 2)
Quarter: 2014Q2

REPORT INFORMATION
  Report Type: Other
  Country: CA (occurrence: CA)
  Receive Date: 20140605
  Receipt Date: 20140605
  Transmission Date: 20141212
  Serious: Yes (Hospitalization, Other)
  Sender: FDA-Public Use
  Company Number: CA-GSKPPD-2014GSK010620

PATIENT
  Age: 78 Year
  Sex: Male

DRUGS (5)
  1. AVANDIA [Suspect]
     Indication: DIABETES MELLITUS
     Dosage: DATES OF AVANDIA USE COULD NOT BE CONFIRMED IN RECORDS REVIEWED.
     Route: 048
  2. ENTERIC COATED ASPIRIN [Concomitant]
     Route: 048
  3. RAMIPRIL [Concomitant]
     Route: 048
  4. BISOPROLOL [Concomitant]
     Route: 048
  5. ATENOLOL [Concomitant]

REACTIONS (4)
  - Coronary artery disease [Recovered/Resolved]
  - Bundle branch block left [Recovered/Resolved]
  - Implantable defibrillator insertion [Recovered/Resolved]
  - Left ventricular dysfunction [None]
